FAERS Safety Report 11438831 (Version 1)
Quarter: 2015Q3

REPORT INFORMATION
  Report Type: Spontaneous
  Country: US (occurrence: US)
  Receive Date: 20150901
  Receipt Date: 20150901
  Transmission Date: 20151125
  Serious: No
  Sender: FDA-Public Use
  Company Number: US-ROCHE-1068907

PATIENT
  Sex: Female

DRUGS (3)
  1. PEGASYS [Suspect]
     Active Substance: PEGINTERFERON ALFA-2A
     Indication: CHRONIC HEPATITIS C
     Route: 058
     Dates: start: 20120427
  2. INCIVEK [Suspect]
     Active Substance: TELAPREVIR
     Indication: CHRONIC HEPATITIS C
     Route: 065
  3. RIBAVIRIN. [Suspect]
     Active Substance: RIBAVIRIN
     Indication: CHRONIC HEPATITIS C
     Route: 065
     Dates: start: 20120427

REACTIONS (8)
  - Device malfunction [Unknown]
  - Frustration [Not Recovered/Not Resolved]
  - Nervousness [Not Recovered/Not Resolved]
  - Chills [Unknown]
  - Thinking abnormal [Not Recovered/Not Resolved]
  - Fatigue [Unknown]
  - Underdose [Unknown]
  - Product quality issue [Unknown]
